FAERS Safety Report 10186584 (Version 1)
Quarter: 2014Q2

REPORT INFORMATION
  Report Type: Spontaneous
  Country: DK (occurrence: GB)
  Receive Date: 20140521
  Receipt Date: 20140521
  Transmission Date: 20141212
  Serious: Yes (Hospitalization)
  Sender: FDA-Public Use
  Company Number: GB-FRI-1000067514

PATIENT
  Age: 62 Year
  Sex: Female
  Weight: 73 kg

DRUGS (3)
  1. CITALOPRAM [Suspect]
     Indication: DEPRESSION
     Dosage: 20 MG DAILY
     Route: 048
     Dates: start: 20140110
  2. TAPENTADOL [Suspect]
     Indication: BACK PAIN
     Dosage: 50 MG TWICE DAILY
     Route: 048
     Dates: start: 20140416, end: 20140419
  3. DIHYDROCODEINE [Concomitant]

REACTIONS (4)
  - Serotonin syndrome [Recovered/Resolved]
  - Malaise [Recovered/Resolved]
  - Muscle twitching [Recovered/Resolved]
  - Drug interaction [Unknown]
